FAERS Safety Report 6925818-2 (Version None)
Quarter: 2010Q3

REPORT INFORMATION
  Report Type: 
  Country: None (occurrence: None)
  Receive Date: 20100810
  Receipt Date: 20100726
  Transmission Date: 20110219
  Serious: Yes (Hospitalization)
  Sender: FDA-Public Use
  Company Number: 2010003140

PATIENT
  Age: 60 Year
  Sex: Male

DRUGS (15)
  1. ERLOTINIB HYDROCHLORIDE [Suspect]
     Indication: HEPATIC NEOPLASM MALIGNANT
     Dosage: (150 MG, QD), ORAL; (100 MG, QD), ORAL; (100 MG, QD), ORAL; (100 MG, QD), ORAL
     Route: 048
     Dates: start: 20091124, end: 20091207
  2. ERLOTINIB HYDROCHLORIDE [Suspect]
     Indication: HEPATIC NEOPLASM MALIGNANT
     Dosage: (150 MG, QD), ORAL; (100 MG, QD), ORAL; (100 MG, QD), ORAL; (100 MG, QD), ORAL
     Route: 048
     Dates: start: 20091215, end: 20100510
  3. ERLOTINIB HYDROCHLORIDE [Suspect]
     Indication: HEPATIC NEOPLASM MALIGNANT
     Dosage: (150 MG, QD), ORAL; (100 MG, QD), ORAL; (100 MG, QD), ORAL; (100 MG, QD), ORAL
     Route: 048
     Dates: start: 20100518, end: 20100621
  4. ERLOTINIB HYDROCHLORIDE [Suspect]
     Indication: HEPATIC NEOPLASM MALIGNANT
     Dosage: (150 MG, QD), ORAL; (100 MG, QD), ORAL; (100 MG, QD), ORAL; (100 MG, QD), ORAL
     Route: 048
     Dates: start: 20100622
  5. SORAFENIB [Suspect]
     Indication: HEPATIC NEOPLASM MALIGNANT
     Dosage: (800 MG, QD), ORAL; (800 MG, QD), ORAL; (400 MG, QD), ORAL
     Route: 048
     Dates: start: 20091124, end: 20091207
  6. SORAFENIB [Suspect]
     Indication: HEPATIC NEOPLASM MALIGNANT
     Dosage: (800 MG, QD), ORAL; (800 MG, QD), ORAL; (400 MG, QD), ORAL
     Route: 048
     Dates: start: 20091215, end: 20100510
  7. SORAFENIB [Suspect]
     Indication: HEPATIC NEOPLASM MALIGNANT
     Dosage: (800 MG, QD), ORAL; (800 MG, QD), ORAL; (400 MG, QD), ORAL
     Route: 048
     Dates: start: 20100518
  8. OXYTETRACYCLINE [Concomitant]
  9. FUROSEMIDE (FUUROSEMIDE) [Concomitant]
  10. PERINDOPRIL ERBUMINE [Concomitant]
  11. LERCANIDIPINE [Concomitant]
  12. IBUPROFEN [Concomitant]
  13. ALLANTOIN (ALLANTOIN) [Concomitant]
  14. POTASSIUM CHLORIDE [Concomitant]
  15. BENZYDAMINE HYDROCHLORIDE (BENZYDAMINE HYDROCHLORIDE) [Concomitant]

REACTIONS (1)
  - ANAEMIA [None]
